FAERS Safety Report 9052569 (Version 1)
Quarter: 2013Q1

REPORT INFORMATION
  Report Type: Spontaneous
  Country: EC (occurrence: EC)
  Receive Date: 20130207
  Receipt Date: 20130207
  Transmission Date: 20140127
  Serious: Yes (Other)
  Sender: FDA-Public Use
  Company Number: EC-MPIJNJ-2013-00833

PATIENT
  Sex: 0

DRUGS (1)
  1. VELCADE [Suspect]
     Indication: PRODUCT USED FOR UNKNOWN INDICATION
     Dosage: 1.3 MG/M2, CYCLIC
     Route: 065

REACTIONS (4)
  - Panniculitis [Unknown]
  - Skin oedema [Unknown]
  - Pruritus [Unknown]
  - Rash [Unknown]
